FAERS Safety Report 5964277-3 (Version None)
Quarter: 2008Q4

REPORT INFORMATION
  Report Type: 
  Country: None (occurrence: None)
  Receive Date: 20081124
  Receipt Date: 20081112
  Transmission Date: 20090506
  Serious: Yes (Other)
  Sender: FDA-Public Use
  Company Number: JP-PFIZER INC-2008096051

PATIENT
  Age: 7 Year
  Sex: Female

DRUGS (4)
  1. METHYLPREDNISOLONE 16MG TAB [Suspect]
     Indication: IMMUNOSUPPRESSANT DRUG THERAPY
     Dates: start: 20080421, end: 20080101
  2. ALG [Suspect]
     Indication: IMMUNOSUPPRESSANT DRUG THERAPY
     Dates: start: 20080421, end: 20080101
  3. CYCLOSPORINE [Suspect]
     Indication: IMMUNOSUPPRESSANT DRUG THERAPY
     Dates: start: 20080320, end: 20080101
  4. NEUPOGEN [Concomitant]
     Indication: IMMUNOSUPPRESSANT DRUG THERAPY
     Dates: start: 20080101, end: 20080101

REACTIONS (2)
  - CEREBRAL HAEMORRHAGE [None]
  - ENCEPHALOPATHY [None]
